FAERS Safety Report 15146822 (Version 1)
Quarter: 2018Q3

REPORT INFORMATION
  Report Type: Spontaneous
  Country: US (occurrence: US)
  Receive Date: 20180716
  Receipt Date: 20180716
  Transmission Date: 20181010
  Serious: Yes (Life-Threatening, Hospitalization, Other)
  Sender: FDA-Public Use
  Company Number: US-BRISTOL-MYERS SQUIBB COMPANY-BMS-2018-062273

PATIENT
  Age: 65 Year
  Sex: Male

DRUGS (2)
  1. COUMADIN [Suspect]
     Active Substance: WARFARIN SODIUM
     Indication: THROMBOSIS
     Dosage: 5 MG, QD
     Route: 065
     Dates: start: 2007, end: 20170417
  2. LATANOPROST. [Concomitant]
     Active Substance: LATANOPROST
     Indication: PRODUCT USED FOR UNKNOWN INDICATION
     Dosage: UNK
     Route: 065

REACTIONS (6)
  - Blood cholesterol increased [Unknown]
  - Drug ineffective [Unknown]
  - International normalised ratio fluctuation [Unknown]
  - Thrombosis [Unknown]
  - Malaise [Unknown]
  - Somnolence [Unknown]

NARRATIVE: CASE EVENT DATE: 201206
